FAERS Safety Report 25415985 (Version 1)
Quarter: 2025Q2

REPORT INFORMATION
  Report Type: Report from Study
  Country: IT (occurrence: IT)
  Receive Date: 20250610
  Receipt Date: 20250610
  Transmission Date: 20250717
  Serious: Yes (Other)
  Sender: TEVA
  Company Number: IT-TEVA-VS-3339210

PATIENT
  Age: 76 Year

DRUGS (2)
  1. OXALIPLATIN [Suspect]
     Active Substance: OXALIPLATIN
     Indication: Rectal cancer
     Dosage: WEEKLY, CONTINUOUS 2 HOURS INFUSION
     Route: 065
  2. FLUOROURACIL [Suspect]
     Active Substance: FLUOROURACIL
     Indication: Rectal cancer
     Dosage: 5-FU, 24-H CONTINUOUS INFUSION, 5 DAYS A WEEK
     Route: 065

REACTIONS (1)
  - Myocardial infarction [Unknown]
